FAERS Safety Report 9099755 (Version 1)
Quarter: 2013Q1

REPORT INFORMATION
  Report Type: Spontaneous
  Country: US (occurrence: US)
  Receive Date: 20130214
  Receipt Date: 20130214
  Transmission Date: 20140127
  Serious: Yes (Hospitalization, Other)
  Sender: FDA-Public Use
  Company Number: US-ELI_LILLY_AND_COMPANY-US201302001379

PATIENT
  Age: 52 Year
  Sex: Male

DRUGS (12)
  1. EFFIENT [Suspect]
     Dosage: 60 MG, SINGLE
     Route: 048
     Dates: start: 20110625, end: 20110625
  2. EFFIENT [Suspect]
     Dosage: 10 MG, UNKNOWN
     Route: 048
     Dates: start: 20110626
  3. ISOSORBIDE DINITRATE [Concomitant]
     Dosage: 15 MG, QD
     Dates: start: 20110627, end: 20110727
  4. HYDRALAZINE [Concomitant]
     Dosage: 30 MG, QD
     Dates: start: 20110628, end: 20110727
  5. CARVEDILOL [Concomitant]
     Dosage: 6.25 MG, QD
     Dates: start: 20110628
  6. LOVAZA [Concomitant]
     Dosage: 2 MG, QD
     Dates: start: 20110628
  7. ASPIRIN [Concomitant]
     Dosage: UNK
     Dates: start: 20110626
  8. METFORMIN [Concomitant]
     Dosage: 1000 MG, QD
     Dates: start: 20110620
  9. CRESTOR [Concomitant]
     Dosage: 40 MG, QD
     Dates: start: 20110211
  10. ZETIA [Concomitant]
     Dosage: 10 MG, QD
     Dates: start: 20110211, end: 20110727
  11. LISINOPRIL [Concomitant]
     Dosage: 10 MG, QD
     Dates: start: 20110211, end: 20110727
  12. FENOFIBRATE [Concomitant]
     Dosage: 48 MG, QD
     Dates: start: 20110626

REACTIONS (2)
  - Oesophageal ulcer [Unknown]
  - Gastrointestinal haemorrhage [Recovered/Resolved]
